FAERS Safety Report 8112578-5 (Version None)
Quarter: 2012Q1

REPORT INFORMATION
  Report Type: 
  Country: None (occurrence: None)
  Receive Date: 20120203
  Receipt Date: 20120201
  Transmission Date: 20120608
  Serious: Yes (Death)
  Sender: FDA-Public Use
  Company Number: US-B.I. PHARMACEUTICALS,INC./RIDGEFIELD-2011-BP-26622BP

PATIENT
  Age: 71 Year
  Sex: Female

DRUGS (3)
  1. PRADAXA [Suspect]
     Indication: ATRIAL FIBRILLATION
     Dosage: 300 MG
     Route: 048
     Dates: start: 20111031, end: 20111104
  2. AMIODARONE HCL [Concomitant]
     Dosage: 800 MG
     Dates: start: 20111031, end: 20111104
  3. MULTAQ [Concomitant]
     Indication: ATRIAL FIBRILLATION
     Dosage: 800 MG
     Dates: start: 20111030, end: 20111101

REACTIONS (2)
  - THROMBOSIS [None]
  - INTESTINAL ISCHAEMIA [None]
